FAERS Safety Report 5148596-9 (Version None)
Quarter: 2006Q4

REPORT INFORMATION
  Report Type: 
  Country: None (occurrence: None)
  Receive Date: 20061107
  Receipt Date: 20061027
  Transmission Date: 20070319
  Serious: Yes (Other)
  Sender: FDA-Public Use
  Company Number: 2006116285

PATIENT
  Age: 74 Year
  Sex: Female
  Weight: 74 kg

DRUGS (3)
  1. MINOXIDIL [Suspect]
     Indication: ALOPECIA
     Dosage: 40MG/DAY, TOPICAL
     Route: 061
     Dates: start: 20060606, end: 20060910
  2. BISOPROLOL FUMARATE [Concomitant]
  3. DRUG, UNSPECIFIED (DRUG, UNSPECIFIED) [Concomitant]

REACTIONS (3)
  - DERMATITIS CONTACT [None]
  - HYPERSENSITIVITY [None]
  - SKIN BURNING SENSATION [None]
